FAERS Safety Report 8851461 (Version 4)
Quarter: 2013Q1

REPORT INFORMATION
  Report Type: Spontaneous
  Country: US (occurrence: US)
  Receive Date: 20121022
  Receipt Date: 20130305
  Transmission Date: 20140127
  Serious: Yes (Hospitalization)
  Sender: FDA-Public Use
  Company Number: US-BIOGENIDEC-2012BI046054

PATIENT
  Age: 56 Year
  Sex: Male

DRUGS (12)
  1. TYSABRI [Suspect]
     Indication: MULTIPLE SCLEROSIS
     Route: 042
     Dates: start: 20120917, end: 20121116
  2. AVONEX [Concomitant]
  3. INSULIN [Concomitant]
  4. ALPRAZOLAM [Concomitant]
  5. ASA [Concomitant]
  6. CITALOPRAM [Concomitant]
  7. DIPHENHYDRAMINE [Concomitant]
  8. GABAPENTIN [Concomitant]
  9. METFORMIN [Concomitant]
  10. NAPROXEN [Concomitant]
  11. TAMSULOSIN [Concomitant]
  12. ZOLPIDEM [Concomitant]

REACTIONS (5)
  - Infusion related reaction [Unknown]
  - Mental status changes [Unknown]
  - Mobility decreased [Unknown]
  - Osteomyelitis [Recovered/Resolved]
  - Apparent death [Unknown]
